FAERS Safety Report 7524380-3 (Version None)
Quarter: 2011Q2

REPORT INFORMATION
  Report Type: 
  Country: None (occurrence: None)
  Receive Date: 20110606
  Receipt Date: 20091023
  Transmission Date: 20111010
  Serious: No
  Sender: FDA-Public Use
  Company Number: 2009BI034470

PATIENT
  Sex: Female

DRUGS (1)
  1. TYSABRI [Suspect]
     Indication: MULTIPLE SCLEROSIS
     Route: 042
     Dates: start: 20081028

REACTIONS (12)
  - ABASIA [None]
  - ARTHRALGIA [None]
  - OEDEMA PERIPHERAL [None]
  - BALANCE DISORDER [None]
  - WEIGHT INCREASED [None]
  - ROTATOR CUFF SYNDROME [None]
  - TREMOR [None]
  - FATIGUE [None]
  - MULTIPLE SCLEROSIS [None]
  - FALL [None]
  - GAIT DISTURBANCE [None]
  - DRUG INEFFECTIVE [None]
